FAERS Safety Report 11214648 (Version 2)
Quarter: 2015Q3

REPORT INFORMATION
  Report Type: Spontaneous
  Country: US (occurrence: None)
  Receive Date: 20150622
  Receipt Date: 20150708
  Transmission Date: 20151125
  Serious: Yes (Hospitalization)
  Sender: FDA-Public Use
  Company Number: US-2015VAL000394

PATIENT
  Age: 59 Year
  Sex: Male

DRUGS (1)
  1. METOPROLOL TARTRATE (METOPROLOL TARTRATE) UNKNOWN [Suspect]
     Active Substance: METOPROLOL TARTRATE
     Indication: PRODUCT USED FOR UNKNOWN INDICATION
     Dosage: 75 MG/DL (7.5 GM)
     Route: 048

REACTIONS (12)
  - Blood creatinine increased [None]
  - Torsade de pointes [None]
  - Mental disorder [None]
  - Hyperglycaemia [None]
  - Cardiogenic shock [None]
  - Cardiac arrest [None]
  - Drug level increased [None]
  - Pulseless electrical activity [None]
  - Drug screen positive [None]
  - Immobile [None]
  - Overdose [None]
  - Hypomagnesaemia [None]
